FAERS Safety Report 13823686 (Version 2)
Quarter: 2017Q4

REPORT INFORMATION
  Report Type: Report from Study
  Country: US (occurrence: US)
  Receive Date: 20170802
  Receipt Date: 20171013
  Transmission Date: 20180320
  Serious: No
  Sender: FDA-Public Use
  Company Number: US-TAKEDA-2017MPI006584

PATIENT
  Age: 59 Year
  Sex: Female

DRUGS (13)
  1. BACTRIM [Concomitant]
     Active Substance: SULFAMETHOXAZOLE\TRIMETHOPRIM
     Dosage: UNK
  2. ACYCLOVIR                          /00587301/ [Concomitant]
     Active Substance: ACYCLOVIR
     Dosage: UNK
  3. IXAZOMIB [Suspect]
     Active Substance: IXAZOMIB
     Dosage: 4 MG, UNK
     Route: 048
     Dates: start: 20170801
  4. POTASSIUM [Concomitant]
     Active Substance: POTASSIUM
     Dosage: UNK
  5. CALCIUM [Concomitant]
     Active Substance: CALCIUM
     Dosage: UNK
  6. IXAZOMIB [Suspect]
     Active Substance: IXAZOMIB
     Indication: AMYLOIDOSIS
     Dosage: 4 MG, QD
     Route: 048
     Dates: start: 20170622
  7. OMEPRAZOLE. [Concomitant]
     Active Substance: OMEPRAZOLE
     Dosage: UNK
  8. SIMVASTATIN. [Concomitant]
     Active Substance: SIMVASTATIN
     Dosage: UNK
  9. FUROSEMIDE. [Concomitant]
     Active Substance: FUROSEMIDE
     Dosage: UNK
  10. REVLIMID [Concomitant]
     Active Substance: LENALIDOMIDE
     Dosage: UNK
  11. BIOTIN [Concomitant]
     Active Substance: BIOTIN
     Dosage: UNK
  12. ALENDRONATE [Concomitant]
     Active Substance: ALENDRONATE SODIUM
     Dosage: UNK
  13. TOPROL XL [Concomitant]
     Active Substance: METOPROLOL SUCCINATE
     Dosage: UNK

REACTIONS (6)
  - Hypotension [Unknown]
  - Dyspnoea [Unknown]
  - Pyrexia [Unknown]
  - Palpitations [Unknown]
  - Dizziness [Unknown]
  - Off label use [Unknown]

NARRATIVE: CASE EVENT DATE: 20170622
